FAERS Safety Report 22169574 (Version 2)
Quarter: 2023Q2

REPORT INFORMATION
  Report Type: Report from Study
  Country: RU (occurrence: RU)
  Receive Date: 20230404
  Receipt Date: 20230408
  Transmission Date: 20230722
  Serious: Yes (Death, Other)
  Sender: FDA-Public Use
  Company Number: RU-002147023-NVSC2023RU077020

PATIENT
  Age: 55 Year
  Sex: Male

DRUGS (1)
  1. TASIGNA [Suspect]
     Active Substance: NILOTINIB
     Indication: Chronic myeloid leukaemia
     Dosage: 400 MG, BID
     Route: 065

REACTIONS (4)
  - Cerebral haemorrhage [Fatal]
  - Thrombocytopenia [Fatal]
  - Blast crisis in myelogenous leukaemia [Unknown]
  - Drug ineffective [Unknown]
